FAERS Safety Report 15690733 (Version 1)
Quarter: 2018Q4

REPORT INFORMATION
  Report Type: Spontaneous
  Country: US (occurrence: US)
  Receive Date: 20181205
  Receipt Date: 20181205
  Transmission Date: 20190205
  Serious: No
  Sender: FDA-Public Use
  Company Number: US-THERAVANCE-2018-000033

PATIENT

DRUGS (6)
  1. VANCOMYCIN                         /00314402/ [Concomitant]
     Active Substance: VANCOMYCIN
     Indication: DIABETIC FOOT INFECTION
  2. VIBATIV [Suspect]
     Active Substance: TELAVANCIN HYDROCHLORIDE
     Indication: STAPHYLOCOCCAL OSTEOMYELITIS
  3. VANCOMYCIN                         /00314402/ [Concomitant]
     Active Substance: VANCOMYCIN
     Indication: STAPHYLOCOCCAL OSTEOMYELITIS
  4. VIBATIV [Suspect]
     Active Substance: TELAVANCIN HYDROCHLORIDE
     Indication: STAPHYLOCOCCAL INFECTION
     Dosage: 10 MG/KG, QD
     Route: 042
  5. VIBATIV [Suspect]
     Active Substance: TELAVANCIN HYDROCHLORIDE
     Indication: DIABETIC FOOT INFECTION
  6. VANCOMYCIN                         /00314402/ [Concomitant]
     Active Substance: VANCOMYCIN
     Indication: STAPHYLOCOCCAL INFECTION
     Dosage: UNK

REACTIONS (3)
  - Nausea [Unknown]
  - Off label use [Unknown]
  - Dysgeusia [Unknown]
